APPROVED DRUG PRODUCT: AZELASTINE HYDROCHLORIDE
Active Ingredient: AZELASTINE HYDROCHLORIDE
Strength: 0.137MG/SPRAY
Dosage Form/Route: SPRAY, METERED;NASAL
Application: A090176 | Product #001
Applicant: BIONPHARMA INC
Approved: Jul 28, 2015 | RLD: No | RS: No | Type: DISCN